FAERS Safety Report 6241887-X (Version None)
Quarter: 2009Q2

REPORT INFORMATION
  Report Type: 
  Country: None (occurrence: None)
  Receive Date: 20090622
  Receipt Date: 20090609
  Transmission Date: 20091009
  Serious: Yes (Hospitalization)
  Sender: FDA-Public Use
  Company Number: 2009AP002157

PATIENT
  Age: 11 Year
  Sex: Male

DRUGS (7)
  1. CYCLOSPORINE [Suspect]
     Dosage: 250 MG;BID;PO
     Route: 048
  2. VANCOMYCIN [Concomitant]
  3. CEFTAZIDIME [Concomitant]
  4. FLUCONAZOLE [Concomitant]
  5. METHYLPREDNISOLONE [Concomitant]
  6. AMPHOTERICIN B [Concomitant]
  7. ANTITHYMOCYTE INMMUNOGLOBULIN [Concomitant]

REACTIONS (7)
  - CAECITIS [None]
  - HALLUCINATION, VISUAL [None]
  - HYPERTENSION [None]
  - HYPOMAGNESAEMIA [None]
  - PANCYTOPENIA [None]
  - PYREXIA [None]
  - REVERSIBLE POSTERIOR LEUKOENCEPHALOPATHY SYNDROME [None]
